FAERS Safety Report 23286765 (Version 1)
Quarter: 2023Q4

REPORT INFORMATION
  Report Type: Report from Study
  Country: DE (occurrence: DE)
  Receive Date: 20231212
  Receipt Date: 20231212
  Transmission Date: 20240109
  Serious: Yes (Hospitalization, Other)
  Sender: FDA-Public Use
  Company Number: DE-002147023-NVSC2023DE014870

PATIENT
  Sex: Female

DRUGS (2)
  1. ADALIMUMAB [Suspect]
     Active Substance: ADALIMUMAB\ISOPROPYL ALCOHOL
     Indication: Psoriatic arthropathy
     Dosage: 40 MG, Q2W (EVERY SECOND WEEK)
     Route: 058
     Dates: start: 20211119, end: 20220520
  2. ADALIMUMAB [Suspect]
     Active Substance: ADALIMUMAB\ISOPROPYL ALCOHOL
     Dosage: 40 MG
     Route: 058
     Dates: start: 20210806, end: 20211022

REACTIONS (12)
  - Pneumonia [Unknown]
  - Rhinitis [Unknown]
  - Skin disorder [Recovered/Resolved]
  - Arthralgia [Recovered/Resolved]
  - Back pain [Recovered/Resolved]
  - Diarrhoea [Unknown]
  - Psoriatic arthropathy [Recovered/Resolved]
  - Joint effusion [Unknown]
  - Vomiting [Unknown]
  - Oral herpes [Unknown]
  - Herpes zoster [Unknown]
  - Nail disorder [Recovered/Resolved]

NARRATIVE: CASE EVENT DATE: 20220415
